FAERS Safety Report 9890641 (Version 1)
Quarter: 2014Q1

REPORT INFORMATION
  Report Type: Spontaneous
  Country: US (occurrence: None)
  Receive Date: 20140210
  Receipt Date: 20140210
  Transmission Date: 20141002
  Serious: No
  Sender: FDA-Public Use
  Company Number: None

PATIENT
  Age: 21 Year
  Sex: Male
  Weight: 66.8 kg

DRUGS (24)
  1. EXJADE [Suspect]
     Indication: SICKLE CELL ANAEMIA
     Route: 048
     Dates: start: 20130716, end: 20140101
  2. WARFARIN [Concomitant]
  3. SUBOXONE [Concomitant]
  4. FLOVENT [Concomitant]
  5. VIT D [Concomitant]
  6. SERTRALINE [Concomitant]
  7. FLUTICASONE [Concomitant]
  8. HYDROXYUREA [Concomitant]
  9. OXYCODONE [Concomitant]
  10. AMLODIPINE [Concomitant]
  11. LISINOPRIL [Concomitant]
  12. PEN VK [Concomitant]
  13. FOLIC ACID [Concomitant]
  14. LOVENOX [Concomitant]
  15. ZYRTEC [Concomitant]
  16. VITAMIN D3 [Concomitant]
  17. HYDROXYZINE [Concomitant]
  18. BACLOFEN [Concomitant]
  19. ONDANSETRON [Concomitant]
  20. SENNA [Concomitant]
  21. SUDOGEST [Suspect]
  22. TACROLIMUS [Suspect]
  23. ISRADIPINE [Suspect]
  24. AMLODIPINE AND BENAZEPRIL [Concomitant]

REACTIONS (1)
  - Renal impairment [None]
